FAERS Safety Report 23904581 (Version 2)
Quarter: 2025Q2

REPORT INFORMATION
  Report Type: Spontaneous
  Country: JP (occurrence: JP)
  Receive Date: 20240527
  Receipt Date: 20250630
  Transmission Date: 20250717
  Serious: Yes (Other)
  Sender: PFIZER
  Company Number: JP-PFIZER INC-PV202400066348

PATIENT
  Age: 74 Year
  Sex: Male

DRUGS (8)
  1. VORICONAZOLE [Suspect]
     Active Substance: VORICONAZOLE
     Indication: Bronchopulmonary aspergillosis
     Route: 048
  2. DEXAMETHASONE [Concomitant]
     Active Substance: DEXAMETHASONE
     Indication: Plasma cell myeloma
     Route: 048
  3. POMALIDOMIDE [Concomitant]
     Active Substance: POMALIDOMIDE
     Indication: Bronchopulmonary aspergillosis
     Route: 048
  4. EDOXABAN TOSYLATE [Concomitant]
     Active Substance: EDOXABAN TOSYLATE
  5. LANSOPRAZOLE [Concomitant]
     Active Substance: LANSOPRAZOLE
  6. FUROSEMIDE [Concomitant]
     Active Substance: FUROSEMIDE
  7. CILNIDIPINE [Concomitant]
     Active Substance: CILNIDIPINE
  8. ENALAPRIL MALEATE [Concomitant]
     Active Substance: ENALAPRIL MALEATE

REACTIONS (4)
  - Squamous cell carcinoma of skin [Unknown]
  - Metastases to lymph nodes [Unknown]
  - Actinic keratosis [Recovering/Resolving]
  - Photosensitivity reaction [Recovering/Resolving]
